FAERS Safety Report 20510375 (Version 1)
Quarter: 2022Q1

REPORT INFORMATION
  Report Type: Spontaneous
  Country: CO (occurrence: CO)
  Receive Date: 20220224
  Receipt Date: 20220224
  Transmission Date: 20220424
  Serious: Yes (Other)
  Sender: FDA-Public Use
  Company Number: CO-AMGEN-COLSP2022029725

PATIENT
  Age: 64 Year
  Sex: Female
  Weight: 45 kg

DRUGS (6)
  1. MVASI [Suspect]
     Active Substance: BEVACIZUMAB-AWWB
     Indication: Cervix carcinoma
     Dosage: 675 MILLIGRAM, QD
     Route: 042
     Dates: start: 20211231
  2. PACLITAXEL [Concomitant]
     Active Substance: PACLITAXEL
     Indication: Cervix carcinoma
  3. CARBOPLATIN [Concomitant]
     Active Substance: CARBOPLATIN
     Indication: Cervix carcinoma
     Dosage: 303.65 MILLIGRAM, QD
     Dates: start: 20211231
  4. FOSAPREPITANT [Concomitant]
     Active Substance: FOSAPREPITANT
     Indication: Cervix carcinoma
     Dosage: 150 MILLIGRAM, QD
     Route: 042
     Dates: start: 20211231
  5. PALONOSETRON [Concomitant]
     Active Substance: PALONOSETRON
     Indication: Cervix carcinoma
     Dosage: 0.25 MILLIGRAM, QD
     Route: 042
     Dates: start: 20211231
  6. DEXAMETHASONE PHOSPHATE [Concomitant]
     Active Substance: DEXAMETHASONE PHOSPHATE
     Indication: Cervix carcinoma
     Dosage: 12 MILLIGRAM
     Route: 042
     Dates: start: 20211231

REACTIONS (1)
  - Genital haemorrhage [Not Recovered/Not Resolved]

NARRATIVE: CASE EVENT DATE: 20220131
